FAERS Safety Report 4278335-5 (Version None)
Quarter: 2004Q1

REPORT INFORMATION
  Report Type: 
  Country: None (occurrence: None)
  Receive Date: 20040123
  Receipt Date: 20031225
  Transmission Date: 20041129
  Serious: Yes (Disabling)
  Sender: FDA-Public Use
  Company Number: PHBS2003IL14585

PATIENT
  Age: 56 Year
  Sex: Female
  Weight: 63 kg

DRUGS (1)
  1. ZOMERA [Suspect]
     Indication: OSTEOPENIA
     Dosage: 4 MG, ONCE/SINGLE
     Route: 042
     Dates: start: 20031117

REACTIONS (3)
  - PAIN OF SKIN [None]
  - POLYARTHRITIS [None]
  - RASH [None]
